FAERS Safety Report 11457105 (Version 3)
Quarter: 2017Q1

REPORT INFORMATION
  Report Type: Report from Study
  Country: CA (occurrence: CA)
  Receive Date: 20150904
  Receipt Date: 20170202
  Transmission Date: 20170428
  Serious: Yes (Death, Hospitalization)
  Sender: FDA-Public Use
  Company Number: CA-ROCHE-ITM201411IM007776

PATIENT
  Sex: Female
  Weight: 69.4 kg

DRUGS (9)
  1. ESBRIET [Suspect]
     Active Substance: PIRFENIDONE
     Route: 048
     Dates: start: 20141020
  2. IRBESARTAN. [Concomitant]
     Active Substance: IRBESARTAN
  3. LIPITOR [Concomitant]
     Active Substance: ATORVASTATIN CALCIUM
  4. PANTOLOC [Concomitant]
     Active Substance: PANTOPRAZOLE SODIUM
  5. FLUOXETINE [Concomitant]
     Active Substance: FLUOXETINE HYDROCHLORIDE
  6. ESBRIET [Suspect]
     Active Substance: PIRFENIDONE
     Route: 048
     Dates: start: 2015, end: 201508
  7. NAPROXEN. [Concomitant]
     Active Substance: NAPROXEN
  8. ESBRIET [Suspect]
     Active Substance: PIRFENIDONE
     Indication: IDIOPATHIC PULMONARY FIBROSIS
     Route: 048
     Dates: start: 20141006
  9. ESBRIET [Suspect]
     Active Substance: PIRFENIDONE
     Dosage: SUSPENDED
     Route: 048
     Dates: start: 20141013, end: 201508

REACTIONS (3)
  - Cystitis [Not Recovered/Not Resolved]
  - Pulmonary fibrosis [Fatal]
  - Hot flush [Recovering/Resolving]
